FAERS Safety Report 15433579 (Version 1)
Quarter: 2018Q3

REPORT INFORMATION
  Report Type: Spontaneous
  Country: US (occurrence: US)
  Receive Date: 20180921
  Receipt Date: 20180921
  Transmission Date: 20181010
  Serious: No
  Sender: FDA-Public Use
  Company Number: None

PATIENT
  Age: 56 Year
  Sex: Male

DRUGS (1)
  1. EPCLUSA [Suspect]
     Active Substance: SOFOSBUVIR\VELPATASVIR
     Indication: CHRONIC HEPATITIS C
     Dates: start: 201807

REACTIONS (4)
  - Drug dose omission [None]
  - Pulmonary congestion [None]
  - Nasal congestion [None]
  - Seasonal allergy [None]

NARRATIVE: CASE EVENT DATE: 20180920
